FAERS Safety Report 8887409 (Version 4)
Quarter: 2013Q1

REPORT INFORMATION
  Report Type: Spontaneous
  Country: US (occurrence: US)
  Receive Date: 20121105
  Receipt Date: 20130326
  Transmission Date: 20140127
  Serious: No
  Sender: FDA-Public Use
  Company Number: US-PFIZER INC-2012273948

PATIENT
  Age: 62 Year
  Sex: Male
  Weight: 83 kg

DRUGS (17)
  1. SUTENT [Suspect]
     Indication: METASTATIC RENAL CELL CARCINOMA
     Dosage: 50 MG DAILY FOR 28 DAYS WITH 14 DAY BREAK
     Route: 048
     Dates: start: 20120926
  2. SUTENT [Suspect]
     Dosage: UNK, 1X/DAY
     Route: 048
     Dates: start: 20121010
  3. SUTENT [Suspect]
     Dosage: 42 DAY CYCLE
     Dates: start: 20121108
  4. SYNTHROID [Suspect]
     Indication: HYPOTHYROIDISM
     Dosage: UNK UG, UNK
     Dates: start: 201001
  5. SYNTHROID [Suspect]
     Dosage: 175 UG, UNK
  6. SYNTHROID [Suspect]
     Dosage: 200 UG, 1X/DAY
  7. CAPSAICIN [Concomitant]
     Dosage: UNK
     Route: 061
  8. VOLTAREN [Concomitant]
     Dosage: UNK
  9. MUCINEX ER [Concomitant]
     Indication: RHINORRHOEA
     Dosage: 600 MG, 1X/DAY
  10. INDERAL LA [Concomitant]
     Indication: HYPERTENSION
     Dosage: 120 MG, 1X/DAY
  11. ALLEGRA [Concomitant]
     Indication: HYPERSENSITIVITY
     Dosage: 180 MG, 1X/DAY
  12. IMODIUM [Concomitant]
     Dosage: UNK
  13. CYTOMEL [Concomitant]
     Indication: THYROID DISORDER
     Dosage: 5 UG, 1X/DAY
  14. FOLIC ACID [Concomitant]
     Indication: BLOOD FOLATE DECREASED
     Dosage: 1 MG, 1X/DAY
  15. B-12 [Concomitant]
     Dosage: UNK
  16. AVODART [Concomitant]
     Dosage: 0.5 MG, UNK
  17. MIRALAX POWDER [Concomitant]
     Dosage: AS NEEDED (PRN)

REACTIONS (7)
  - Weight decreased [Recovering/Resolving]
  - Diarrhoea [Unknown]
  - Fatigue [Not Recovered/Not Resolved]
  - Disease progression [Unknown]
  - Metastatic renal cell carcinoma [Unknown]
  - Haemoglobin decreased [Recovered/Resolved]
  - Anaemia [Recovered/Resolved]
